FAERS Safety Report 23557597 (Version 1)
Quarter: 2024Q1

REPORT INFORMATION
  Report Type: Spontaneous
  Country: US (occurrence: US)
  Receive Date: 20240223
  Receipt Date: 20240223
  Transmission Date: 20240410
  Serious: No
  Sender: FDA-Public Use
  Company Number: US-MYLANLABS-2023M1114183

PATIENT
  Age: 65 Year
  Sex: Male
  Weight: 113.39 kg

DRUGS (1)
  1. SEMGLEE (INSULIN GLARGINE-YFGN) [Suspect]
     Active Substance: INSULIN GLARGINE-YFGN
     Indication: Type 2 diabetes mellitus
     Dosage: (30-40 UNITS/ML IN THE MORNING AND 30-35 UNITS/ML IN THE EVENING)
     Route: 058

REACTIONS (1)
  - No adverse event [Unknown]
